FAERS Safety Report 4655866-7 (Version None)
Quarter: 2005Q2

REPORT INFORMATION
  Report Type: 
  Country: None (occurrence: None)
  Receive Date: 20050505
  Receipt Date: 20050425
  Transmission Date: 20051028
  Serious: Yes (Other)
  Sender: FDA-Public Use
  Company Number: 2005047264

PATIENT
  Age: 46 Year
  Sex: Male
  Weight: 65 kg

DRUGS (9)
  1. ALPRAZOLAM [Suspect]
     Indication: DEPRESSION
     Dosage: 2.4 MG (0.8 MG, 3 IN 1 D), ORAL
     Route: 048
     Dates: start: 20010619
  2. ETIZOLAM (ETIZOLAM) [Suspect]
     Indication: DEPRESSION
     Dosage: 3 MG (1 MG, 3 IN 1 D), ORAL
     Route: 048
     Dates: start: 20010619
  3. SULPIRIDE (SULPIRIDE) [Suspect]
     Indication: DEPRESSION
     Dosage: 100 MG (100 MG, 1 IN 1 D), ORAL
     Route: 048
     Dates: start: 20010619
  4. LORAZEPAM [Suspect]
     Indication: DEPRESSION
     Dosage: 3 MG (1 MG, 3 IN 1 D), ORAL
     Route: 048
     Dates: start: 20010619
  5. ZOLPIDEM TARTRATE [Suspect]
     Indication: INSOMNIA
     Dosage: 10 MG (10 MG, 1 IN 1 D), ORAL
     Route: 048
     Dates: start: 20010619
  6. QUAZEPAM [Suspect]
     Indication: INSOMNIA
     Dosage: 30 MG (30 MG, 1 IN 1 D), ORAL
     Route: 048
     Dates: start: 20010619
  7. TRAZODONE HCL [Concomitant]
  8. RABEPRAZOLE SODIUM [Concomitant]
  9. MILNACIPRAN HYDROCHLORIDE (MILNACIPRAN HYDROCHLORIDE) [Concomitant]

REACTIONS (7)
  - ACUTE SINUSITIS [None]
  - ANXIETY [None]
  - HYPERCHOLESTEROLAEMIA [None]
  - HYPERLIPIDAEMIA [None]
  - HYPERTRIGLYCERIDAEMIA [None]
  - LIVER DISORDER [None]
  - VIRAL INFECTION [None]
